FAERS Safety Report 10056237 (Version 2)
Quarter: 2014Q2

REPORT INFORMATION
  Report Type: Spontaneous
  Country: MA (occurrence: MA)
  Receive Date: 20140403
  Receipt Date: 20140416
  Transmission Date: 20141212
  Serious: Yes (Disabling, Other)
  Sender: FDA-Public Use
  Company Number: MA-ELI_LILLY_AND_COMPANY-MA201404000244

PATIENT
  Age: 63 Year
  Sex: Male

DRUGS (5)
  1. DULOXETINE HYDROCHLORIDE [Suspect]
     Indication: PRODUCT USED FOR UNKNOWN INDICATION
     Dosage: 60 MG, UNKNOWN
     Route: 048
     Dates: start: 201403
  2. LEXOMIL [Concomitant]
  3. KARDEGIC [Concomitant]
  4. ANGINIB [Concomitant]
  5. CRESTOR [Concomitant]

REACTIONS (3)
  - Hemiplegia [Not Recovered/Not Resolved]
  - Cerebrovascular accident [Unknown]
  - Metastases to small intestine [Unknown]
